FAERS Safety Report 12698490 (Version 3)
Quarter: 2018Q1

REPORT INFORMATION
  Report Type: Spontaneous
  Country: US (occurrence: US)
  Receive Date: 20160830
  Receipt Date: 20180118
  Transmission Date: 20180508
  Serious: No
  Sender: FDA-Public Use
  Company Number: US-JNJFOC-20160708800

PATIENT
  Sex: Male

DRUGS (6)
  1. RISPERIDAL [Suspect]
     Active Substance: RISPERIDONE
     Indication: MENTAL DISORDER
     Dosage: 1 MG, 4 MG
     Route: 048
     Dates: start: 2013, end: 2015
  2. RISPERIDAL [Suspect]
     Active Substance: RISPERIDONE
     Indication: MENTAL DISORDER
     Dosage: 1 MG, 4 MG
     Route: 048
     Dates: start: 2005, end: 2009
  3. INVEGA [Suspect]
     Active Substance: PALIPERIDONE
     Indication: ANXIETY
     Dosage: 400 MG (CONFLICTINGLY REPORTED)
     Route: 048
     Dates: start: 201401, end: 201412
  4. INVEGA [Suspect]
     Active Substance: PALIPERIDONE
     Indication: MENTAL DISORDER
     Dosage: 400 MG (CONFLICTINGLY REPORTED)
     Route: 048
     Dates: start: 201401, end: 201412
  5. RISPERIDAL [Suspect]
     Active Substance: RISPERIDONE
     Indication: ANXIETY
     Dosage: 1 MG, 4 MG
     Route: 048
     Dates: start: 2005, end: 2009
  6. RISPERIDAL [Suspect]
     Active Substance: RISPERIDONE
     Indication: ANXIETY
     Dosage: 1 MG, 4 MG
     Route: 048
     Dates: start: 2013, end: 2015

REACTIONS (3)
  - Gynaecomastia [Unknown]
  - Galactorrhoea [Unknown]
  - Obesity [Unknown]
